FAERS Safety Report 7102480-X (Version None)
Quarter: 2010Q4

REPORT INFORMATION
  Report Type: 
  Country: None (occurrence: None)
  Receive Date: 20101115
  Receipt Date: 20090505
  Transmission Date: 20110411
  Serious: No
  Sender: FDA-Public Use
  Company Number: 2009BI013703

PATIENT
  Sex: Male

DRUGS (1)
  1. TYSABRI [Suspect]
     Indication: MULTIPLE SCLEROSIS
     Route: 042
     Dates: start: 20061106, end: 20100101

REACTIONS (4)
  - COORDINATION ABNORMAL [None]
  - DRUG INEFFECTIVE [None]
  - GENERAL PHYSICAL HEALTH DETERIORATION [None]
  - HYPOAESTHESIA [None]
